FAERS Safety Report 8117709-9 (Version None)
Quarter: 2012Q1

REPORT INFORMATION
  Report Type: 
  Country: None (occurrence: None)
  Receive Date: 20120203
  Receipt Date: 20120203
  Transmission Date: 20120608
  Serious: Yes (Disabling, Other)
  Sender: FDA-Public Use
  Company Number: None

PATIENT
  Sex: Female
  Weight: 53.2 kg

DRUGS (3)
  1. KEPPRA [Suspect]
     Indication: BRAIN NEOPLASM MALIGNANT
     Dosage: 250MG KEPPRA 2X/DAY ORAL, PILL NO OTHER TREATMENT SINCE MAY 2009
     Route: 048
     Dates: start: 20091201
  2. KEPPRA [Suspect]
     Indication: ANAPLASTIC ASTROCYTOMA
     Dosage: 250MG KEPPRA 2X/DAY ORAL, PILL NO OTHER TREATMENT SINCE MAY 2009
     Route: 048
     Dates: start: 20091201
  3. KEPPRA [Suspect]
     Indication: CONVULSION
     Dosage: 250MG KEPPRA 2X/DAY ORAL, PILL NO OTHER TREATMENT SINCE MAY 2009
     Route: 048
     Dates: start: 20091201

REACTIONS (21)
  - NEGATIVISM [None]
  - APATHY [None]
  - AFFECT LABILITY [None]
  - TEARFULNESS [None]
  - COGNITIVE DISORDER [None]
  - DISTURBANCE IN ATTENTION [None]
  - CONDITION AGGRAVATED [None]
  - HEADACHE [None]
  - SLEEP DISORDER [None]
  - UNEVALUABLE EVENT [None]
  - DRUG EFFECT DECREASED [None]
  - IRRITABILITY [None]
  - AMNESIA [None]
  - DEPENDENCE [None]
  - EAR PAIN [None]
  - SINUS HEADACHE [None]
  - NOCTURIA [None]
  - ACTIVITIES OF DAILY LIVING IMPAIRED [None]
  - HOT FLUSH [None]
  - PAIN [None]
  - PRODUCT QUALITY ISSUE [None]
